FAERS Safety Report 19269161 (Version 2)
Quarter: 2021Q4

REPORT INFORMATION
  Report Type: Spontaneous
  Country: US (occurrence: US)
  Receive Date: 20210518
  Receipt Date: 20211124
  Transmission Date: 20220303
  Serious: Yes (Life-Threatening, Hospitalization, Other)
  Sender: FDA-Public Use
  Company Number: US-TEVA-2021-US-1879727

PATIENT
  Age: 20 Year
  Sex: Female

DRUGS (1)
  1. VERAPAMIL [Suspect]
     Active Substance: VERAPAMIL HYDROCHLORIDE
     Indication: Product used for unknown indication
     Dosage: 40 DOSAGE FORM
     Route: 048

REACTIONS (13)
  - Depressed level of consciousness [Recovering/Resolving]
  - Cardiogenic shock [Recovering/Resolving]
  - Acute kidney injury [Recovering/Resolving]
  - Renal tubular necrosis [Recovering/Resolving]
  - Toxicity to various agents [Recovering/Resolving]
  - Vomiting [Recovering/Resolving]
  - Intracardiac thrombus [Recovering/Resolving]
  - Tricuspid valve disease [Recovering/Resolving]
  - Pneumonia aspiration [Recovering/Resolving]
  - Mental impairment [Recovering/Resolving]
  - Atrioventricular block first degree [Recovering/Resolving]
  - Acidosis [Recovering/Resolving]
  - Intentional overdose [Unknown]
